FAERS Safety Report 19891345 (Version 1)
Quarter: 2021Q3

REPORT INFORMATION
  Report Type: Spontaneous
  Country: FI (occurrence: FI)
  Receive Date: 20210928
  Receipt Date: 20210928
  Transmission Date: 20211014
  Serious: Yes (Disabling)
  Sender: FDA-Public Use
  Company Number: FI-BAYER-2021-214049

PATIENT
  Age: 16 Year
  Sex: Female

DRUGS (1)
  1. YASMIN [Suspect]
     Active Substance: DROSPIRENONE\ETHINYL ESTRADIOL
     Indication: CONTRACEPTION
     Dosage: 1 DF, QD
     Route: 048
     Dates: start: 1998, end: 2020

REACTIONS (7)
  - Myofascitis [Recovering/Resolving]
  - Tendon pain [Recovering/Resolving]
  - Hypertonic bladder [Recovering/Resolving]
  - Dysuria [Recovering/Resolving]
  - Tendonitis [Recovering/Resolving]
  - Vulvovaginal dryness [Recovering/Resolving]
  - Oestrogen deficiency [Recovering/Resolving]

NARRATIVE: CASE EVENT DATE: 1998
